FAERS Safety Report 17160404 (Version 1)
Quarter: 2019Q4

REPORT INFORMATION
  Report Type: Spontaneous
  Country: US (occurrence: US)
  Receive Date: 20191216
  Receipt Date: 20191216
  Transmission Date: 20200122
  Serious: Yes (Other)
  Sender: FDA-Public Use
  Company Number: US-OCULAR THERAPEUTIX-2019OCX00026

PATIENT
  Age: 76 Year
  Sex: Male

DRUGS (2)
  1. DEXTENZA [Suspect]
     Active Substance: DEXAMETHASONE
     Indication: CATARACT OPERATION
     Dosage: 0.4 MG, ONCE RIGHT EYE
     Route: 047
     Dates: start: 20190819
  2. DEXTENZA [Suspect]
     Active Substance: DEXAMETHASONE
     Dosage: 0.4 MG, ONCE LEFT EYE
     Route: 047
     Dates: start: 20190826

REACTIONS (2)
  - Iritis [Recovering/Resolving]
  - Anterior chamber inflammation [Recovering/Resolving]

NARRATIVE: CASE EVENT DATE: 20190904
